FAERS Safety Report 8880941 (Version 3)
Quarter: 2013Q1

REPORT INFORMATION
  Report Type: Report from Study
  Country: US (occurrence: US)
  Receive Date: 20121101
  Receipt Date: 20130221
  Transmission Date: 20140127
  Serious: Yes (Other)
  Sender: FDA-Public Use
  Company Number: US-ABBOTT-12P-163-0999877-00

PATIENT
  Sex: Female

DRUGS (15)
  1. HUMIRA [Suspect]
     Indication: RHEUMATOID ARTHRITIS
     Dates: start: 201202
  2. NEXIUM [Concomitant]
     Indication: GASTROOESOPHAGEAL REFLUX DISEASE
     Route: 048
  3. FUROSEMIDE [Concomitant]
     Indication: DIURETIC THERAPY
     Route: 048
  4. POTASSIUM CHLORIDE [Concomitant]
     Indication: DIURETIC THERAPY
     Route: 048
  5. LIPITOR [Concomitant]
     Indication: BLOOD CHOLESTEROL
     Route: 048
  6. DIVAN [Concomitant]
     Indication: HYPERTENSION
     Route: 048
  7. TEMAZEPAM [Concomitant]
     Indication: INSOMNIA
     Route: 048
  8. BABY ASPIRIN [Concomitant]
     Indication: PERIPHERAL VASCULAR DISORDER
     Route: 048
  9. CYCLOBENZAPRINE [Concomitant]
     Indication: ANXIOLYTIC THERAPY
     Dosage: 1 EVERY 12 HOURS
     Route: 048
  10. TRAVATAN [Concomitant]
     Indication: GLAUCOMA
     Dosage: AT BEDTIME; EACH EYE
  11. PATANOL [Concomitant]
     Indication: GLAUCOMA
     Dosage: IN EACH EYE
  12. RESTASIS [Concomitant]
     Indication: DRY EYE
     Dosage: AM AND PM
  13. PROVENTIL [Concomitant]
     Indication: ASTHMA
  14. VAGIFEM [Concomitant]
     Indication: VULVOVAGINAL DRYNESS
     Route: 067
  15. ALENDRONATE SODIUM [Concomitant]
     Indication: BONE DISORDER
     Route: 048

REACTIONS (4)
  - Benign neoplasm of thyroid gland [Unknown]
  - Urticaria [Unknown]
  - Rash [Unknown]
  - Pruritus [Unknown]
